FAERS Safety Report 9215646 (Version 1)
Quarter: 2013Q2

REPORT INFORMATION
  Report Type: Report from Study
  Country: JP (occurrence: JP)
  Receive Date: 20130408
  Receipt Date: 20130408
  Transmission Date: 20140414
  Serious: Yes (Other)
  Sender: FDA-Public Use
  Company Number: JP-009507513-1304JPN002193

PATIENT
  Age: 51 Year
  Sex: Female
  Weight: 58 kg

DRUGS (14)
  1. PEGINTRON [Suspect]
     Indication: CHRONIC HEPATITIS C
     Dosage: 1.5 MICROGRAM PER KILOGRAM, QW
     Route: 058
     Dates: start: 20120628, end: 20121005
  2. PEGINTRON [Suspect]
     Dosage: 1.5 MICROGRAM PER KILOGRAM, QW
     Route: 058
     Dates: start: 20121019
  3. REBETOL [Suspect]
     Indication: CHRONIC HEPATITIS C
     Dosage: 800 MG, QD
     Route: 048
     Dates: start: 20120628, end: 20120726
  4. REBETOL [Suspect]
     Dosage: 400 MG, QD
     Route: 048
     Dates: start: 20120727, end: 20121005
  5. REBETOL [Suspect]
     Dosage: 400 MG,QD
     Route: 048
     Dates: start: 20121019
  6. TELAVIC [Suspect]
     Indication: CHRONIC HEPATITIS C
     Dosage: 1500 MG, QD
     Route: 048
     Dates: start: 20120628
  7. LENDORMIN [Concomitant]
     Indication: PROPHYLAXIS
     Dosage: 0.125 MG, QD, FORMULATION:POR
     Route: 048
     Dates: start: 20120706
  8. LENDORMIN [Concomitant]
     Dosage: 0.25 MG, QD, FORMULATION:POR
     Route: 048
  9. GASTER D [Concomitant]
     Indication: PROPHYLAXIS
     Dosage: 40 MG, QD, FORMULATION:POR
     Route: 048
     Dates: start: 20120709
  10. GASTER D [Concomitant]
     Dosage: 20 MG.QD FORMULATION:POR
     Route: 048
  11. MUCOSTA [Concomitant]
     Indication: PROPHYLAXIS
     Dosage: 300 MG, QD, FORMULATION :POR
     Route: 048
     Dates: start: 20120709
  12. ZYLORIC [Concomitant]
     Indication: HYPERURICAEMIA
     Dosage: 100 MG, QD, FORMULATION :POR
     Route: 048
     Dates: start: 20120713
  13. BLOPRESS [Concomitant]
     Dosage: 4 MG, QD, FORMULATION :POR
     Route: 048
  14. PRIMPERAN [Concomitant]
     Indication: PROPHYLAXIS
     Dosage: 5 MG/DAY, PRN, FORMULATION:POR
     Route: 048

REACTIONS (1)
  - Neutrophil count decreased [Recovering/Resolving]
